FAERS Safety Report 9933163 (Version 10)
Quarter: 2015Q4

REPORT INFORMATION
  Report Type: Spontaneous
  Country: US (occurrence: US)
  Receive Date: 20140228
  Receipt Date: 20151230
  Transmission Date: 20160305
  Serious: Yes (Hospitalization, Other)
  Sender: FDA-Public Use
  Company Number: US-GLAXOSMITHKLINE-A1051874A

PATIENT
  Age: 57 Year
  Sex: Female

DRUGS (14)
  1. LAMICTAL [Suspect]
     Active Substance: LAMOTRIGINE
     Indication: SEIZURE
     Dosage: 200 MG, U
     Route: 048
     Dates: start: 2006
  2. LAMICTAL [Suspect]
     Active Substance: LAMOTRIGINE
     Dosage: 200 MG, U
     Dates: start: 2005
  3. AMLODIPINE [Concomitant]
     Active Substance: AMLODIPINE BESYLATE
  4. LOSARTAN. [Concomitant]
     Active Substance: LOSARTAN
  5. LAMICTAL [Suspect]
     Active Substance: LAMOTRIGINE
     Indication: NERVOUSNESS
     Dosage: UNK
     Dates: start: 2006
  6. FERROUS SULFATE [Concomitant]
     Active Substance: FERROUS SULFATE\FERROUS SULFATE, DRIED
  7. ATORVASTATIN [Concomitant]
     Active Substance: ATORVASTATIN
  8. LAMOTRIGINE. [Suspect]
     Active Substance: LAMOTRIGINE
     Indication: SEIZURE
  9. LAMICTAL [Suspect]
     Active Substance: LAMOTRIGINE
     Indication: PAIN
     Dosage: UNK
     Dates: start: 2005
  10. LAMICTAL [Suspect]
     Active Substance: LAMOTRIGINE
     Indication: SEIZURE
     Dosage: 200 UNK, UNK
  11. FAMOTIDINE. [Concomitant]
     Active Substance: FAMOTIDINE
  12. LIPITOR [Suspect]
     Active Substance: ATORVASTATIN CALCIUM
     Indication: PRODUCT USED FOR UNKNOWN INDICATION
  13. METFORMIN [Concomitant]
     Active Substance: METFORMIN HYDROCHLORIDE
  14. LAMOTRIGINE. [Suspect]
     Active Substance: LAMOTRIGINE
     Indication: PAIN
     Dosage: 100 MG, BID
     Route: 048
     Dates: start: 2005

REACTIONS (21)
  - Pain [Not Recovered/Not Resolved]
  - Diabetes mellitus [Not Recovered/Not Resolved]
  - Breath odour [Not Recovered/Not Resolved]
  - Seizure [Unknown]
  - Dysgeusia [Not Recovered/Not Resolved]
  - Drug ineffective [Recovering/Resolving]
  - Expired product administered [Unknown]
  - Coma [Unknown]
  - Memory impairment [Unknown]
  - Dry mouth [Not Recovered/Not Resolved]
  - Adverse event [Unknown]
  - Emotional disorder [Unknown]
  - Hospitalisation [Unknown]
  - Off label use [Not Recovered/Not Resolved]
  - Headache [Not Recovered/Not Resolved]
  - Hysterectomy [Unknown]
  - Visual acuity reduced [Unknown]
  - Hospitalisation [Unknown]
  - Drug dependence [Unknown]
  - Overdose [Unknown]
  - Ill-defined disorder [Unknown]

NARRATIVE: CASE EVENT DATE: 201407
